FAERS Safety Report 10934782 (Version 1)
Quarter: 2015Q1

REPORT INFORMATION
  Report Type: Spontaneous
  Country: US (occurrence: US)
  Receive Date: 20150320
  Receipt Date: 20150320
  Transmission Date: 20150721
  Serious: No
  Sender: FDA-Public Use
  Company Number: US-GALDERMA-US15000247

PATIENT
  Age: 57 Year
  Sex: Female

DRUGS (7)
  1. SKIN CEUTICALS SHEER MINERAL UV DEFENCE SPF 50 [Concomitant]
     Indication: PROPHYLAXIS AGAINST SOLAR RADIATION
     Route: 061
     Dates: start: 201501
  2. LUBRIDERM DAILY MOISTURIZER [Concomitant]
     Indication: DRY SKIN PROPHYLAXIS
     Route: 061
  3. MIRVASO [Suspect]
     Active Substance: BRIMONIDINE TARTRATE
     Dosage: 0.33%
     Route: 061
     Dates: start: 2014, end: 201501
  4. MIRVASO [Suspect]
     Active Substance: BRIMONIDINE TARTRATE
     Dosage: 0.33%
     Route: 061
     Dates: start: 20150122
  5. KIRKS CASTILE SOAP [Concomitant]
     Indication: SUPPLEMENTATION THERAPY
     Route: 061
  6. MIRVASO [Suspect]
     Active Substance: BRIMONIDINE TARTRATE
     Indication: ROSACEA
     Dosage: 0.33%
     Route: 061
     Dates: start: 2014, end: 2014
  7. TRETINOIN 0.05% [Concomitant]
     Dosage: 0.05%
     Route: 061

REACTIONS (5)
  - Feeling hot [Recovered/Resolved]
  - Sunburn [Recovered/Resolved]
  - Photosensitivity reaction [Recovered/Resolved]
  - Rosacea [Recovered/Resolved]
  - Erythema [Recovered/Resolved]

NARRATIVE: CASE EVENT DATE: 201403
